FAERS Safety Report 6557712-3 (Version None)
Quarter: 2010Q1

REPORT INFORMATION
  Report Type: 
  Country: None (occurrence: None)
  Receive Date: 20100128
  Receipt Date: 20100128
  Transmission Date: 20100710
  Serious: Yes (Other)
  Sender: FDA-Public Use
  Company Number: None

PATIENT
  Sex: Male
  Weight: 13.6079 kg

DRUGS (1)
  1. LEVOTHYROXINE SODIUM [Suspect]
     Indication: CONGENITAL HYPOTHYROIDISM
     Dosage: 75 MCG PO DAILY
     Route: 048
     Dates: start: 20060301, end: 20071001

REACTIONS (2)
  - BLOOD THYROID STIMULATING HORMONE ABNORMAL [None]
  - PRODUCT SUBSTITUTION ISSUE [None]
